FAERS Safety Report 9425008 (Version 1)
Quarter: 2013Q3

REPORT INFORMATION
  Report Type: Spontaneous
  Country: US (occurrence: US)
  Receive Date: 20130729
  Receipt Date: 20130729
  Transmission Date: 20140515
  Serious: Yes (Other)
  Sender: FDA-Public Use
  Company Number: US-PFIZER INC-2013219908

PATIENT
  Age: 45 Year
  Sex: Male
  Weight: 90.7 kg

DRUGS (2)
  1. EFFEXOR XR [Suspect]
     Indication: DEPRESSION
     Dosage: 225 MG (3 CAPSULES OF 75MG), 1X/DAY
     Route: 048
     Dates: start: 2010
  2. INVEGA [Concomitant]
     Dosage: UNK

REACTIONS (1)
  - Impaired work ability [Unknown]
